FAERS Safety Report 8501900-3 (Version None)
Quarter: 2012Q3

REPORT INFORMATION
  Report Type: 
  Country: None (occurrence: None)
  Receive Date: 20120711
  Receipt Date: 20120705
  Transmission Date: 20120928
  Serious: Yes (Hospitalization, Other)
  Sender: FDA-Public Use
  Company Number: PHHY2012BR032138

PATIENT
  Sex: Female
  Weight: 82 kg

DRUGS (2)
  1. INSULIN [Concomitant]
     Indication: DIABETES MELLITUS
     Dosage: TWO TIMES IN A DAY
     Route: 058
  2. AMLODOPINE BESYLATE AND VALSARTAN [Suspect]
     Indication: BLOOD PRESSURE
     Dosage: 1 TABLET A DAY (320/10 MG)
     Route: 048

REACTIONS (4)
  - PNEUMONIA [None]
  - DIABETES MELLITUS [None]
  - BLOOD PRESSURE FLUCTUATION [None]
  - CYSTIC FIBROSIS [None]
